FAERS Safety Report 24245302 (Version 1)
Quarter: 2024Q3

REPORT INFORMATION
  Report Type: Spontaneous
  Country: GB (occurrence: None)
  Receive Date: 20240824
  Receipt Date: 20240824
  Transmission Date: 20241017
  Serious: Yes (Other)
  Sender: ASTRAZENECA
  Company Number: 2024A187292

PATIENT
  Age: 76 Year
  Sex: Male
  Weight: 80 kg

DRUGS (10)
  1. DAPAGLIFLOZIN [Suspect]
     Active Substance: DAPAGLIFLOZIN
     Indication: Type 2 diabetes mellitus
     Dates: start: 20240813, end: 20240815
  2. LISINOPRIL [Concomitant]
     Active Substance: LISINOPRIL
  3. ATORVASTATIN [Concomitant]
     Active Substance: ATORVASTATIN
  4. METFORMIN [Concomitant]
     Active Substance: METFORMIN HYDROCHLORIDE
  5. GLICLAZIDE [Concomitant]
     Active Substance: GLICLAZIDE
  6. MIRABEGRON [Concomitant]
     Active Substance: MIRABEGRON
  7. FINASTERIDE [Concomitant]
     Active Substance: FINASTERIDE
  8. TAMSULOSIN [Concomitant]
     Active Substance: TAMSULOSIN
  9. FLUCLOXACILLIN [Concomitant]
     Active Substance: FLUCLOXACILLIN
     Dosage: ONE TO BE TAKEN FOUR TIMES A DAY
     Dates: start: 20240605, end: 20240704
  10. DAPAGLIFLOZIN [Concomitant]
     Active Substance: DAPAGLIFLOZIN
     Indication: Type 2 diabetes mellitus
     Dosage: ONE TO BE TAKEN DAILY
     Dates: start: 20240621, end: 20240815

REACTIONS (4)
  - Blood glucose increased [Unknown]
  - Lethargy [Unknown]
  - Pollakiuria [Unknown]
  - Back pain [Unknown]
